FAERS Safety Report 15745056 (Version 2)
Quarter: 2019Q1

REPORT INFORMATION
  Report Type: Report from Study
  Country: JP (occurrence: JP)
  Receive Date: 20181220
  Receipt Date: 20190128
  Transmission Date: 20190417
  Serious: Yes (Other)
  Sender: FDA-Public Use
  Company Number: JP-GLAXOSMITHKLINE-JP2018JPN225774

PATIENT
  Sex: Male

DRUGS (1)
  1. DUTASTERIDE. [Suspect]
     Active Substance: DUTASTERIDE
     Indication: BENIGN PROSTATIC HYPERPLASIA
     Dosage: UNK
     Route: 048

REACTIONS (4)
  - Dementia [Unknown]
  - Male sexual dysfunction [Unknown]
  - Gynaecomastia [Unknown]
  - Hypertrichosis [Unknown]
